FAERS Safety Report 7041915-8 (Version None)
Quarter: 2010Q4

REPORT INFORMATION
  Report Type: 
  Country: None (occurrence: None)
  Receive Date: 20101013
  Receipt Date: 20090928
  Transmission Date: 20110411
  Serious: No
  Sender: FDA-Public Use
  Company Number: US-ASTRAZENECA-2009SE14653

PATIENT
  Age: 64 Year
  Sex: Female

DRUGS (9)
  1. SYMBICORT [Suspect]
     Indication: CHRONIC OBSTRUCTIVE PULMONARY DISEASE
     Dosage: 160/4.5 2 PUFF BID
     Route: 055
     Dates: start: 20090701
  2. SYMBICORT [Suspect]
     Indication: ASTHMA
     Dosage: 160/4.5 2 PUFF BID
     Route: 055
     Dates: start: 20090701
  3. SPIRIVA [Concomitant]
  4. BENICAR [Concomitant]
  5. CELEXA [Concomitant]
  6. GLUCOSAMINE/CHONDROITIN [Concomitant]
  7. CALCIUM [Concomitant]
  8. ALENDRONATE SODIUM [Concomitant]
  9. DAILY VITAMIN [Concomitant]

REACTIONS (2)
  - STOMATITIS [None]
  - WEIGHT INCREASED [None]
